FAERS Safety Report 24117493 (Version 2)
Quarter: 2025Q2

REPORT INFORMATION
  Report Type: Spontaneous
  Country: US (occurrence: US)
  Receive Date: 20240722
  Receipt Date: 20250603
  Transmission Date: 20250717
  Serious: No
  Sender: SANOFI AVENTIS
  Company Number: US-SA-SAC20240718000331

PATIENT
  Sex: Female

DRUGS (10)
  1. DUPIXENT [Suspect]
     Active Substance: DUPILUMAB
     Indication: Dermatitis atopic
     Dosage: 300 MG, QOW
     Route: 058
  2. DUPIXENT [Suspect]
     Active Substance: DUPILUMAB
     Route: 058
     Dates: start: 20250522, end: 20250522
  3. NIFEDIPINE [Concomitant]
     Active Substance: NIFEDIPINE
  4. CARVEDILOL [Concomitant]
     Active Substance: CARVEDILOL
  5. FOLIC ACID [Concomitant]
     Active Substance: FOLIC ACID
  6. CYCLOSPORINE [Concomitant]
     Active Substance: CYCLOSPORINE
  7. FAMOTIDINE [Concomitant]
     Active Substance: FAMOTIDINE
  8. PREDNISONE [Concomitant]
     Active Substance: PREDNISONE
  9. HYDROXYCHLOROQUINE SULFATE [Concomitant]
     Active Substance: HYDROXYCHLOROQUINE SULFATE
  10. TRIAMCINOLONE [Concomitant]
     Active Substance: TRIAMCINOLONE

REACTIONS (2)
  - Dry skin [Unknown]
  - Rash [Unknown]
